FAERS Safety Report 7835339-0 (Version None)
Quarter: 2011Q4

REPORT INFORMATION
  Report Type: 
  Country: None (occurrence: None)
  Receive Date: 20111024
  Receipt Date: 20111018
  Transmission Date: 20120403
  Serious: Yes (Hospitalization)
  Sender: FDA-Public Use
  Company Number: ES-MEDIMMUNE-MEDI-0013731

PATIENT

DRUGS (1)
  1. SYNAGIS [Suspect]
     Indication: PROPHYLAXIS
     Route: 030
     Dates: start: 20111014, end: 20111014

REACTIONS (2)
  - BRONCHITIS [None]
  - PYREXIA [None]
